FAERS Safety Report 4911986-0 (Version None)
Quarter: 2006Q1

REPORT INFORMATION
  Report Type: 
  Country: None (occurrence: None)
  Receive Date: 20060213
  Receipt Date: 20060131
  Transmission Date: 20060701
  Serious: Yes (Hospitalization)
  Sender: FDA-Public Use
  Company Number: 2006016872

PATIENT
  Age: 69 Year
  Sex: Male

DRUGS (1)
  1. HALCION [Suspect]
     Indication: ILL-DEFINED DISORDER
     Dosage: 0.125 MG, ORAL
     Route: 048

REACTIONS (1)
  - OPTIC NEURITIS [None]
